FAERS Safety Report 9253963 (Version 1)
Quarter: 2013Q2

REPORT INFORMATION
  Report Type: Spontaneous
  Country: US (occurrence: None)
  Receive Date: 20130422
  Receipt Date: 20130422
  Transmission Date: 20140414
  Serious: Yes (Other)
  Sender: FDA-Public Use
  Company Number: None

PATIENT
  Sex: Female
  Weight: 47.63 kg

DRUGS (1)
  1. CYMBALTA 60 MG ELI LILL [Suspect]
     Indication: BACK PAIN
     Dosage: 60MG  1 Q AM  PO
     Route: 048
     Dates: start: 20120612, end: 20130410

REACTIONS (4)
  - Paraesthesia [None]
  - Headache [None]
  - Dizziness [None]
  - Palpitations [None]
